FAERS Safety Report 11588128 (Version 4)
Quarter: 2016Q1

REPORT INFORMATION
  Report Type: Spontaneous
  Country: US (occurrence: US)
  Receive Date: 20151002
  Receipt Date: 20160303
  Transmission Date: 20160525
  Serious: Yes (Other)
  Sender: FDA-Public Use
  Company Number: US-THROMBOGENICS NV-SPO-2015-2020

PATIENT
  Age: 74 Year
  Sex: Male

DRUGS (2)
  1. JETREA [Suspect]
     Active Substance: OCRIPLASMIN
     Indication: VITREOUS ADHESIONS
     Dosage: 0.125 MG, ONE TIME DOSE
     Route: 031
     Dates: start: 20130114, end: 20130114
  2. JETREA [Suspect]
     Active Substance: OCRIPLASMIN
     Indication: MACULAR HOLE

REACTIONS (4)
  - Macular fibrosis [Recovered/Resolved]
  - Visual acuity reduced [Recovered/Resolved]
  - Macular hole [Recovered/Resolved]
  - Disease recurrence [Recovered/Resolved]

NARRATIVE: CASE EVENT DATE: 20150105
